FAERS Safety Report 21254858 (Version 1)
Quarter: 2022Q3

REPORT INFORMATION
  Report Type: Spontaneous
  Country: US (occurrence: None)
  Receive Date: 20220824
  Receipt Date: 20220824
  Transmission Date: 20221027
  Serious: Yes (Hospitalization)
  Sender: FDA-Public Use
  Company Number: None

PATIENT
  Sex: Female

DRUGS (2)
  1. EVEROLIMUS [Suspect]
     Active Substance: EVEROLIMUS
     Indication: Status epilepticus
     Dosage: DISSOLVE 2 TABLETS (4 MG) IN 25ML OF WATER, LET SIT FOR 3 MINUTES THEN STIR AND DRINK ONCE DAILY FOR
     Route: 048
     Dates: start: 202208
  2. EVEROLIMUS [Suspect]
     Active Substance: EVEROLIMUS
     Indication: Tuberous sclerosis complex

REACTIONS (1)
  - Hospitalisation [None]
